FAERS Safety Report 24115958 (Version 1)
Quarter: 2024Q3

REPORT INFORMATION
  Report Type: Report from Study
  Country: US (occurrence: US)
  Receive Date: 20240722
  Receipt Date: 20240722
  Transmission Date: 20241016
  Serious: Yes (Other)
  Sender: GILEAD
  Company Number: US-GILEAD-2024-0681021

PATIENT
  Sex: Male

DRUGS (1)
  1. AZTREONAM LYSINE [Suspect]
     Active Substance: AZTREONAM LYSINE
     Indication: Pseudomonas infection
     Dosage: 75 MG (28 DAYS ON AND 28 DAYS OFF. QUANTITY OF 84)
     Route: 065

REACTIONS (2)
  - Lung transplant [Unknown]
  - Off label use [Not Recovered/Not Resolved]
